FAERS Safety Report 12088186 (Version 1)
Quarter: 2016Q1

REPORT INFORMATION
  Report Type: Report from Study
  Country: ES (occurrence: ES)
  Receive Date: 20160218
  Receipt Date: 20160218
  Transmission Date: 20160526
  Serious: Yes (Hospitalization)
  Sender: FDA-Public Use
  Company Number: ES-ROCHE-1674652

PATIENT
  Age: 71 Year
  Sex: Female

DRUGS (2)
  1. ERLOTINIB [Suspect]
     Active Substance: ERLOTINIB
     Indication: NON-SMALL CELL LUNG CANCER
     Dosage: MOST RECENT DOSE PRIOR TO SAE 18/NOV/2015?THE THERAPY WAS RESUMED ON : 11/DEC/2015
     Route: 048
     Dates: start: 20130321
  2. BEVACIZUMAB [Suspect]
     Active Substance: BEVACIZUMAB
     Indication: NON-SMALL CELL LUNG CANCER
     Dosage: MOST RECENT DOSE PRIOR TO SAE  29/OCT/2015?THE THERAPY WAS RESUMED ON : 11/DEC/2015
     Route: 042
     Dates: start: 20130321

REACTIONS (2)
  - Blood disorder [Recovered/Resolved]
  - Lymphatic disorder [Recovered/Resolved]

NARRATIVE: CASE EVENT DATE: 20151124
